FAERS Safety Report 23701315 (Version 1)
Quarter: 2024Q2

REPORT INFORMATION
  Report Type: Spontaneous
  Country: US (occurrence: None)
  Receive Date: 20240402
  Receipt Date: 20240402
  Transmission Date: 20240716
  Serious: No
  Sender: FDA-Public Use
  Company Number: None

PATIENT
  Sex: Female

DRUGS (3)
  1. FLUTICASONE [Suspect]
     Active Substance: FLUTICASONE
     Indication: Pharyngitis streptococcal
     Dates: start: 20240326, end: 20240402
  2. FLUTICASONE [Suspect]
     Active Substance: FLUTICASONE
     Indication: Tonsillar hypertrophy
  3. FLUTICASONE [Suspect]
     Active Substance: FLUTICASONE
     Indication: Sleep apnoea syndrome

REACTIONS (8)
  - Sleep apnoea syndrome [None]
  - Condition aggravated [None]
  - Anxiety [None]
  - Insomnia [None]
  - Formication [None]
  - Feeling abnormal [None]
  - Muscle twitching [None]
  - Product use complaint [None]

NARRATIVE: CASE EVENT DATE: 20240402
